FAERS Safety Report 14075184 (Version 1)
Quarter: 2017Q4

REPORT INFORMATION
  Report Type: Spontaneous
  Country: DE (occurrence: DE)
  Receive Date: 20171010
  Receipt Date: 20171010
  Transmission Date: 20180321
  Serious: Yes (Other)
  Sender: FDA-Public Use
  Company Number: DE-BAYER-2017-190231

PATIENT
  Age: 47 Year
  Sex: Female
  Weight: 160 kg

DRUGS (1)
  1. MIRENA [Suspect]
     Active Substance: LEVONORGESTREL
     Indication: MENORRHAGIA
     Dosage: 20 MCG/24HR, CONT
     Route: 015

REACTIONS (3)
  - Deep vein thrombosis [None]
  - Intentional device use issue [None]
  - Pulmonary embolism [None]
